FAERS Safety Report 6975232-9 (Version None)
Quarter: 2010Q3

REPORT INFORMATION
  Report Type: 
  Country: None (occurrence: None)
  Receive Date: 20100910
  Receipt Date: 20090212
  Transmission Date: 20110219
  Serious: No
  Sender: FDA-Public Use
  Company Number: US-WYE-H08197809

PATIENT

DRUGS (3)
  1. PRISTIQ [Suspect]
  2. BUSPAR [Suspect]
  3. WELLBUTRIN [Suspect]

REACTIONS (1)
  - DRUG SCREEN POSITIVE [None]
